FAERS Safety Report 7101247-6 (Version None)
Quarter: 2010Q4

REPORT INFORMATION
  Report Type: 
  Country: None (occurrence: None)
  Receive Date: 20101115
  Receipt Date: 20101102
  Transmission Date: 20110411
  Serious: Yes (Hospitalization)
  Sender: FDA-Public Use
  Company Number: CA-JNJFOC-20101101924

PATIENT
  Sex: Female
  Weight: 62.7 kg

DRUGS (5)
  1. REMICADE [Suspect]
     Indication: CROHN'S DISEASE
     Route: 042
  2. REMICADE [Suspect]
     Route: 042
  3. REMICADE [Suspect]
     Dosage: 1 DOSE
     Route: 042
  4. BENADRYL [Concomitant]
     Indication: PREMEDICATION
     Route: 042
  5. SOLU-CORTEF [Concomitant]
     Indication: PREMEDICATION
     Route: 042

REACTIONS (11)
  - ABDOMINAL PAIN [None]
  - ARTHRALGIA [None]
  - CHEST DISCOMFORT [None]
  - FLUSHING [None]
  - HYPOKALAEMIA [None]
  - INFUSION RELATED REACTION [None]
  - MYALGIA [None]
  - NECK PAIN [None]
  - PRURITUS [None]
  - URTICARIA [None]
  - VOMITING [None]
